FAERS Safety Report 4300747-1 (Version None)
Quarter: 2004Q1

REPORT INFORMATION
  Report Type: 
  Country: None (occurrence: None)
  Receive Date: 20040218
  Receipt Date: 20040129
  Transmission Date: 20041129
  Serious: Yes (Other)
  Sender: FDA-Public Use
  Company Number: USA031050084

PATIENT
  Age: 84 Year
  Sex: Female

DRUGS (5)
  1. FORTEO [Suspect]
     Indication: OSTEOPOROSIS
     Dosage: 20 UG/AT BEDTIME
     Dates: start: 20030423, end: 20031212
  2. LESCOL [Concomitant]
  3. HYZAAR [Concomitant]
  4. VITAMIN CAP [Concomitant]
  5. CALTRATE (CALCIUM CARBONATE) [Concomitant]

REACTIONS (13)
  - ABASIA [None]
  - ARTHRITIS [None]
  - ASTHENIA [None]
  - BLOOD CALCIUM INCREASED [None]
  - CHOLELITHIASIS [None]
  - CONSTIPATION [None]
  - HYPOAESTHESIA [None]
  - MUSCLE CRAMP [None]
  - MUSCULAR WEAKNESS [None]
  - NAUSEA [None]
  - PAIN [None]
  - PAIN IN EXTREMITY [None]
  - TRANSIENT ISCHAEMIC ATTACK [None]
